FAERS Safety Report 15644254 (Version 19)
Quarter: 2019Q3

REPORT INFORMATION
  Report Type: Report from Study
  Country: PL (occurrence: PL)
  Receive Date: 20181121
  Receipt Date: 20190715
  Transmission Date: 20191004
  Serious: Yes (Death, Life-Threatening, Hospitalization, Other)
  Sender: FDA-Public Use
  Company Number: PL-B.I. PHARMACEUTICALS,INC./RIDGEFIELD-2018-BI-033334

PATIENT
  Age: 82 Year
  Sex: Male
  Weight: 75 kg

DRUGS (17)
  1. MILURIT [Concomitant]
     Active Substance: ALLOPURINOL
     Indication: CHRONIC KIDNEY DISEASE
     Route: 048
     Dates: start: 20180618
  2. TRIFAS [Concomitant]
     Indication: CORONARY ARTERY DISEASE
  3. POLOCARD [Concomitant]
     Active Substance: ASPIRIN
     Indication: CORONARY ARTERY DISEASE
     Route: 048
     Dates: start: 20171020
  4. ATORVASTEROL [Concomitant]
     Active Substance: ATORVASTATIN
     Indication: LIPID METABOLISM DISORDER
     Route: 048
     Dates: start: 20180522
  5. POLFILIN [Concomitant]
     Active Substance: PENTOXIFYLLINE
     Route: 048
     Dates: start: 20180626, end: 20180821
  6. AGAPURIN [Concomitant]
     Indication: PERIPHERAL VASCULAR DISORDER
     Route: 048
     Dates: start: 20180525
  7. PROCORALAN [Concomitant]
     Active Substance: IVABRADINE
     Indication: PRODUCT USED FOR UNKNOWN INDICATION
     Route: 048
     Dates: start: 20180618, end: 20180626
  8. POLFILIN [Concomitant]
     Active Substance: PENTOXIFYLLINE
     Indication: PERIPHERAL VASCULAR DISORDER
     Route: 048
     Dates: start: 20180821
  9. EMPAGLIFLOZIN [Suspect]
     Active Substance: EMPAGLIFLOZIN
     Indication: CARDIAC FAILURE
     Route: 048
     Dates: start: 20180529, end: 20180618
  10. TRIFAS [Concomitant]
     Indication: CARDIAC FAILURE
     Route: 048
     Dates: start: 20180522
  11. POLPRIL [Concomitant]
     Active Substance: RAMIPRIL
     Indication: CARDIAC FAILURE
     Route: 048
     Dates: start: 20180522
  12. CARVEDILOL. [Concomitant]
     Active Substance: CARVEDILOL
     Indication: CARDIAC FAILURE
     Route: 048
     Dates: start: 20180522
  13. IVABRADINA [Concomitant]
     Active Substance: IVABRADINE
     Route: 048
  14. EMPAGLIFLOZIN [Suspect]
     Active Substance: EMPAGLIFLOZIN
     Route: 048
     Dates: start: 20180626
  15. SPIRONOL [Suspect]
     Active Substance: SPIRONOLACTONE
     Indication: CARDIAC FAILURE
     Route: 048
     Dates: start: 20180522, end: 20180618
  16. IVABRADINA [Concomitant]
     Active Substance: IVABRADINE
     Indication: CARDIAC FAILURE
     Route: 048
     Dates: start: 20180522, end: 20180626
  17. POLFILIN [Concomitant]
     Active Substance: PENTOXIFYLLINE
     Route: 048

REACTIONS (6)
  - Loss of consciousness [Recovered/Resolved]
  - Diabetic nephropathy [Recovered/Resolved]
  - Cardiac failure [Unknown]
  - Pancreatitis acute [Fatal]
  - Diabetic nephropathy [Unknown]
  - Hepatic failure [Unknown]

NARRATIVE: CASE EVENT DATE: 20180618
